FAERS Safety Report 8253005-7 (Version None)
Quarter: 2012Q2

REPORT INFORMATION
  Report Type: 
  Country: None (occurrence: None)
  Receive Date: 20120402
  Receipt Date: 20120329
  Transmission Date: 20120825
  Serious: Yes (Other)
  Sender: FDA-Public Use
  Company Number: AU-MERCK-1203USA04041

PATIENT

DRUGS (1)
  1. FOSAMAX PLUS D [Suspect]
     Route: 065
     Dates: start: 20080101

REACTIONS (1)
  - FEMUR FRACTURE [None]
